FAERS Safety Report 9327957 (Version 2)
Quarter: 2013Q3

REPORT INFORMATION
  Report Type: Spontaneous
  Country: US (occurrence: US)
  Receive Date: 20130604
  Receipt Date: 20130726
  Transmission Date: 20140515
  Serious: Yes (Death)
  Sender: FDA-Public Use
  Company Number: US-GILEAD-2013-0076299

PATIENT
  Age: 52 Year
  Sex: Male

DRUGS (3)
  1. LETAIRIS [Suspect]
     Indication: PULMONARY HYPERTENSION
     Dosage: 10 MG, UNK
     Route: 048
     Dates: start: 20070802
  2. LETAIRIS [Suspect]
     Indication: HIV INFECTION
  3. LETAIRIS [Suspect]
     Indication: DRUG ABUSE

REACTIONS (1)
  - Death [Fatal]
